FAERS Safety Report 6416138-3 (Version None)
Quarter: 2009Q4

REPORT INFORMATION
  Report Type: 
  Country: None (occurrence: None)
  Receive Date: 20091023
  Receipt Date: 20091013
  Transmission Date: 20100525
  Serious: Yes (Other)
  Sender: FDA-Public Use
  Company Number: 230758J09USA

PATIENT
  Age: 30 Year
  Sex: Female
  Weight: 88 kg

DRUGS (6)
  1. REBIF [Suspect]
     Indication: MULTIPLE SCLEROSIS
     Dosage: 44 MCG, 3 IN 1 WEEKS, SUBCUTANEOUS
     Route: 058
     Dates: start: 20081104
  2. IBUPROFEN [Concomitant]
  3. NAPROXEN [Concomitant]
  4. BENADRYL [Concomitant]
  5. ALLEGRA [Concomitant]
  6. VANIQA (EFLORNITHINE HYDROCHLORIDE) [Concomitant]

REACTIONS (5)
  - CARDIAC FLUTTER [None]
  - CHEST DISCOMFORT [None]
  - DRUG DOSE OMISSION [None]
  - PALPITATIONS [None]
  - VENTRICULAR EXTRASYSTOLES [None]
